FAERS Safety Report 7330092-1 (Version None)
Quarter: 2011Q1

REPORT INFORMATION
  Report Type: 
  Country: None (occurrence: None)
  Receive Date: 20110303
  Receipt Date: 20110221
  Transmission Date: 20110831
  Serious: Yes (Hospitalization)
  Sender: FDA-Public Use
  Company Number: FR-ELI_LILLY_AND_COMPANY-FR201102005487

PATIENT
  Sex: Female

DRUGS (7)
  1. CISPLATIN [Concomitant]
     Dosage: 135 G, ONE INTAKE
     Route: 042
     Dates: start: 20100929
  2. EMEND [Concomitant]
     Dosage: 125 MG, DAILY (1/D)
     Dates: start: 20100929
  3. ATARAX [Concomitant]
     Dosage: UNK, AS NEEDED
  4. AMOXICILLIN [Concomitant]
     Dosage: 3 G, DAILY (1/D)
     Dates: start: 20100927, end: 20101004
  5. GEMZAR [Suspect]
     Dosage: 2120 MG, ONE INTAKE
     Route: 042
     Dates: start: 20100929
  6. LARGACTIL [Concomitant]
     Dates: start: 20100929, end: 20101009
  7. EMEND [Concomitant]
     Dosage: 80 MG, DAILY (1/D)

REACTIONS (3)
  - HYPOKALAEMIA [None]
  - DEPRESSED LEVEL OF CONSCIOUSNESS [None]
  - HYPONATRAEMIA [None]
